APPROVED DRUG PRODUCT: FLUOCINONIDE ACETONIDE
Active Ingredient: FLUOCINOLONE ACETONIDE
Strength: 0.01%
Dosage Form/Route: OIL/DROPS;OTIC
Application: A211815 | Product #001
Applicant: GLENMARK PHARMACEUTICALS LTD
Approved: Dec 14, 2018 | RLD: No | RS: No | Type: DISCN